FAERS Safety Report 4647240-4 (Version None)
Quarter: 2005Q2

REPORT INFORMATION
  Report Type: 
  Country: None (occurrence: None)
  Receive Date: 20050426
  Receipt Date: 20050415
  Transmission Date: 20051028
  Serious: No
  Sender: FDA-Public Use
  Company Number: 2005-127489-NL

PATIENT
  Age: 28 Year
  Sex: Male

DRUGS (1)
  1. MIRTAZAPINE [Suspect]
     Dosage: 15 MG/30 MG; ORAL
     Route: 048
     Dates: start: 20041217, end: 20050128

REACTIONS (2)
  - CONTUSION [None]
  - THROMBOCYTOPENIA [None]
